FAERS Safety Report 8521458-2 (Version None)
Quarter: 2012Q3

REPORT INFORMATION
  Report Type: 
  Country: None (occurrence: None)
  Receive Date: 20120719
  Receipt Date: 20120717
  Transmission Date: 20120928
  Serious: No
  Sender: FDA-Public Use
  Company Number: US-TEVA-348003USA

PATIENT
  Sex: Female
  Weight: 78.996 kg

DRUGS (12)
  1. LORAZEPAM [Concomitant]
     Indication: DEPRESSION
  2. GENERIC TWO PILL EMERGENCY CONTACEPTIVE [Suspect]
     Dates: start: 20120701, end: 20120701
  3. ZOLOFT [Concomitant]
     Indication: ANXIETY
  4. PLAN B ONE-STEP [Suspect]
     Dosage: 1.5 MILLIGRAM;
     Route: 048
     Dates: start: 20120707, end: 20120707
  5. ZOLOFT [Concomitant]
     Indication: DEPRESSION
  6. PLAN B ONE-STEP [Suspect]
     Indication: POST COITAL CONTRACEPTION
     Dosage: 1.5 MILLIGRAM;
     Route: 048
     Dates: start: 20120701, end: 20120701
  7. LAMICTAL [Concomitant]
     Indication: DEPRESSION
  8. LORAZEPAM [Concomitant]
     Indication: ANXIETY
  9. LAPUDA [Concomitant]
     Indication: DEPRESSION
  10. LAMICTAL [Concomitant]
     Indication: ANXIETY
  11. LAPUDA [Concomitant]
     Indication: ANXIETY
  12. GENERIC TWO PILL EMERGENCY CONTACEPTIVE [Suspect]
     Indication: POST COITAL CONTRACEPTION
     Dates: start: 20120621, end: 20120621

REACTIONS (1)
  - MENSTRUATION IRREGULAR [None]
